FAERS Safety Report 10028710 (Version 1)
Quarter: 2014Q1

REPORT INFORMATION
  Report Type: Report from Study
  Country: AR (occurrence: AR)
  Receive Date: 20140321
  Receipt Date: 20140321
  Transmission Date: 20141002
  Serious: Yes (Death, Other)
  Sender: FDA-Public Use
  Company Number: PHHY2014AR033442

PATIENT
  Sex: Male

DRUGS (1)
  1. EXELON [Suspect]
     Indication: DEMENTIA ALZHEIMER^S TYPE
     Dosage: 3 MG, DAILY
     Route: 048

REACTIONS (4)
  - Cardiac failure [Fatal]
  - Pulmonary congestion [Fatal]
  - Joint dislocation [Unknown]
  - Hypotension [Unknown]
